FAERS Safety Report 19955840 (Version 2)
Quarter: 2021Q4

REPORT INFORMATION
  Report Type: Spontaneous
  Country: US (occurrence: US)
  Receive Date: 20211014
  Receipt Date: 20211019
  Transmission Date: 20220304
  Serious: No
  Sender: FDA-Public Use
  Company Number: NVSC2021US234435

PATIENT
  Sex: Female

DRUGS (2)
  1. XIIDRA [Suspect]
     Active Substance: LIFITEGRAST
     Indication: Dry eye
     Dosage: BID (1 DROP BOTH EYE)
     Route: 065
  2. XIIDRA [Suspect]
     Active Substance: LIFITEGRAST
     Indication: Eye inflammation

REACTIONS (4)
  - Eye irritation [Recovered/Resolved]
  - Eye pain [Unknown]
  - Vision blurred [Recovered/Resolved]
  - Instillation site pain [Unknown]
